FAERS Safety Report 23790437 (Version 2)
Quarter: 2025Q1

REPORT INFORMATION
  Report Type: Spontaneous
  Country: CA (occurrence: CA)
  Receive Date: 20240427
  Receipt Date: 20250303
  Transmission Date: 20250409
  Serious: Yes (Other)
  Sender: CELLTRION
  Company Number: CA-CELLTRION INC.-2022CA015895

PATIENT

DRUGS (4)
  1. YUFLYMA [Suspect]
     Active Substance: ADALIMUMAB-AATY
     Indication: Crohn^s disease
     Dosage: 40 MG/ SUBCUTANEOUS (WEEK 0)/  1 EVERY 2 WEEKS
     Route: 058
     Dates: start: 20220907
  2. YUFLYMA [Suspect]
     Active Substance: ADALIMUMAB-AATY
     Dosage: 40 MILLIGRAM, Q2WEEKS (WEEK 2)/ 1 EVERY 2 WEEKS
     Route: 058
     Dates: start: 20220921
  3. YUFLYMA [Suspect]
     Active Substance: ADALIMUMAB-AATY
     Dosage: 40 MILLIGRAM (WEEKS SUBCUTANEOUS)/ 1 EVERY 2 WEEKS
     Route: 058
     Dates: start: 20221005
  4. YUFLYMA [Suspect]
     Active Substance: ADALIMUMAB-AATY
     Dosage: 40 MG WEEKLY / 1 EVERY 1 WEEKS
     Route: 058
     Dates: start: 20220907

REACTIONS (4)
  - Colitis [Not Recovered/Not Resolved]
  - Injection site pain [Recovered/Resolved]
  - Injection site haemorrhage [Recovered/Resolved]
  - Underdose [Unknown]

NARRATIVE: CASE EVENT DATE: 20220907
